FAERS Safety Report 9976690 (Version 1)
Quarter: 2014Q1

REPORT INFORMATION
  Report Type: Report from Study
  Country: US (occurrence: US)
  Receive Date: 20140306
  Receipt Date: 20140306
  Transmission Date: 20141002
  Serious: No
  Sender: FDA-Public Use
  Company Number: US-ABBVIE-13P-163-1166091-00

PATIENT
  Sex: Female

DRUGS (8)
  1. HUMIRA [Suspect]
     Indication: CROHN^S DISEASE
     Dates: start: 201305
  2. NEXIUM [Concomitant]
     Indication: GASTROOESOPHAGEAL REFLUX DISEASE
  3. JANUVIA [Concomitant]
     Indication: GLUCOSE TOLERANCE IMPAIRED
  4. LIPITOR [Concomitant]
     Indication: BLOOD CHOLESTEROL
  5. CELEXA [Concomitant]
     Indication: DEPRESSION
  6. NORVASC [Concomitant]
     Indication: BLOOD PRESSURE
  7. XANAX [Concomitant]
     Indication: INSOMNIA
     Dosage: AT NIGHT
  8. FISH OIL [Concomitant]
     Indication: PRODUCT USED FOR UNKNOWN INDICATION

REACTIONS (1)
  - Blood calcium increased [Recovered/Resolved]
